FAERS Safety Report 4620906-8 (Version None)
Quarter: 2005Q1

REPORT INFORMATION
  Report Type: 
  Country: None (occurrence: None)
  Receive Date: 20050325
  Receipt Date: 20050302
  Transmission Date: 20050727
  Serious: No
  Sender: FDA-Public Use
  Company Number: URSO 2005--005

PATIENT

DRUGS (1)
  1. URSODIOL [Suspect]
     Route: 048

REACTIONS (1)
  - INTERSTITIAL LUNG DISEASE [None]
